FAERS Safety Report 9684197 (Version 2)
Quarter: 2013Q4

REPORT INFORMATION
  Report Type: Report from Study
  Country: IL (occurrence: IL)
  Receive Date: 20131112
  Receipt Date: 20131112
  Transmission Date: 20140711
  Serious: Yes (Other)
  Sender: FDA-Public Use
  Company Number: IL-ABBVIE-13P-082-1079661-00

PATIENT
  Age: 26 Year
  Sex: Female

DRUGS (7)
  1. HUMIRA [Suspect]
     Indication: CROHN^S DISEASE
     Route: 058
     Dates: start: 20090101
  2. HUMIRA [Suspect]
  3. RAFASSAL [Concomitant]
     Indication: PRODUCT USED FOR UNKNOWN INDICATION
  4. COLCHICIN [Concomitant]
     Indication: FAMILIAL MEDITERRANEAN FEVER
  5. FOLIC [Concomitant]
     Indication: PREGNANCY
  6. ALENDRONATE [Concomitant]
     Indication: PRODUCT USED FOR UNKNOWN INDICATION
     Route: 048
  7. FERTILITY HORMONES [Concomitant]
     Indication: INFERTILITY
     Dates: start: 20130611

REACTIONS (4)
  - Abortion spontaneous [Unknown]
  - Infertility female [Unknown]
  - Drug ineffective [Unknown]
  - Crohn^s disease [Unknown]
